FAERS Safety Report 16876645 (Version 2)
Quarter: 2019Q4

REPORT INFORMATION
  Report Type: Report from Study
  Country: CA (occurrence: CA)
  Receive Date: 20191002
  Receipt Date: 20191008
  Transmission Date: 20200122
  Serious: Yes (Hospitalization, Other)
  Sender: FDA-Public Use
  Company Number: CA-GILEAD-2019-0431114

PATIENT
  Age: 61 Year
  Sex: Female

DRUGS (6)
  1. LEDIPASVIR/SOFOSBUVIR [Suspect]
     Active Substance: LEDIPASVIR\SOFOSBUVIR
     Indication: CHRONIC HEPATITIS C
     Dosage: 1 DOSAGE FORM, QD
     Route: 048
     Dates: start: 20190903
  2. TYLENOL A [Concomitant]
     Active Substance: ACETAMINOPHEN
     Dosage: UNK
  3. AMLODIPINE [Concomitant]
     Active Substance: AMLODIPINE BESYLATE
     Dosage: UNK
  4. PENICILLIN [PENICILLIN NOS] [Concomitant]
     Active Substance: PENICILLIN
  5. INDAPAMIDE. [Concomitant]
     Active Substance: INDAPAMIDE
  6. ATIVAN [Concomitant]
     Active Substance: LORAZEPAM
     Dosage: UNKNOWN

REACTIONS (15)
  - Gamma-glutamyltransferase increased [Not Recovered/Not Resolved]
  - White blood cell count increased [Unknown]
  - Visual impairment [Unknown]
  - Dizziness [Unknown]
  - Lymphocyte count increased [Unknown]
  - Monocyte count decreased [Unknown]
  - Blood pressure increased [Not Recovered/Not Resolved]
  - Myocardial infarction [Unknown]
  - Chest pain [Unknown]
  - Blood creatinine decreased [Unknown]
  - Hypertensive crisis [Unknown]
  - Confusional state [Unknown]
  - Bleeding time prolonged [Unknown]
  - Hypoaesthesia [Unknown]
  - Presyncope [Unknown]

NARRATIVE: CASE EVENT DATE: 201909
